FAERS Safety Report 8098072-9 (Version None)
Quarter: 2012Q1

REPORT INFORMATION
  Report Type: 
  Country: None (occurrence: None)
  Receive Date: 20120128
  Receipt Date: 20110808
  Transmission Date: 20120608
  Serious: No
  Sender: FDA-Public Use
  Company Number: US-ABBOTT-11P-163-0844790-00

PATIENT
  Age: 48 Year
  Sex: Female

DRUGS (5)
  1. ENTOCORT EC [Concomitant]
     Indication: PRODUCT USED FOR UNKNOWN INDICATION
     Dosage: 3 TABLETS DAILY
  2. BENECAR [Concomitant]
     Indication: HYPERTENSION
     Dosage: 20-12.5MG DAILY
  3. URSODIOL [Concomitant]
     Indication: CHOLANGITIS SCLEROSING
     Dosage: BID
  4. HUMIRA [Suspect]
     Indication: CROHN'S DISEASE
     Dosage: SECOND DOSE
     Dates: start: 20110723
  5. DEXILANT [Concomitant]
     Indication: GASTROOESOPHAGEAL REFLUX DISEASE
     Dosage: DAILY

REACTIONS (4)
  - ABDOMINAL PAIN [None]
  - INJECTION SITE PAIN [None]
  - COUGH [None]
  - FATIGUE [None]
